FAERS Safety Report 7285332-4 (Version None)
Quarter: 2011Q1

REPORT INFORMATION
  Report Type: 
  Country: None (occurrence: None)
  Receive Date: 20110210
  Receipt Date: 20110120
  Transmission Date: 20110831
  Serious: Yes (Hospitalization)
  Sender: FDA-Public Use
  Company Number: US-ROCHE-757604

PATIENT
  Age: 45 Year
  Sex: Female
  Weight: 63.5 kg

DRUGS (7)
  1. DIAZEPAM [Suspect]
     Indication: ANXIETY
     Dosage: CO-INDICATION: FOR TAPERING OFF CLONAZEPAM
     Route: 065
  2. CLONAZEPAM [Suspect]
     Route: 065
     Dates: start: 20100201, end: 20100401
  3. DIAZEPAM [Suspect]
     Route: 065
  4. CLONAZEPAM [Suspect]
     Indication: ANXIETY
     Dosage: CO-INDICATION: NARCOTIC TAPERING
     Route: 065
  5. CLONAZEPAM [Suspect]
     Route: 065
  6. CLONAZEPAM [Suspect]
     Route: 065
  7. CLONAZEPAM [Suspect]
     Route: 065

REACTIONS (14)
  - URINARY INCONTINENCE [None]
  - DEREALISATION [None]
  - CHEST PAIN [None]
  - MALAISE [None]
  - DIZZINESS [None]
  - WEIGHT DECREASED [None]
  - ANAEMIA [None]
  - PHYSICAL DISABILITY [None]
  - FEELING ABNORMAL [None]
  - PRURITUS [None]
  - GASTROINTESTINAL PAIN [None]
  - NAUSEA [None]
  - SPEECH DISORDER [None]
  - PAIN [None]
